FAERS Safety Report 8055062-X (Version None)
Quarter: 2012Q1

REPORT INFORMATION
  Report Type: 
  Country: None (occurrence: None)
  Receive Date: 20120119
  Receipt Date: 20120117
  Transmission Date: 20120608
  Serious: Yes (Death, Other)
  Sender: FDA-Public Use
  Company Number: US-PFIZER INC-2012014350

PATIENT
  Sex: Male
  Weight: 141 kg

DRUGS (16)
  1. ALBUTEROL SULFATE [Concomitant]
     Dosage: UNK
  2. RITALIN [Concomitant]
     Indication: DEPRESSION
     Dosage: 5 MG, DAILY
  3. LISINOPRIL [Concomitant]
     Dosage: 2.5 MG, DAILY
  4. ALDACTONE [Concomitant]
     Dosage: 25 MG, 2X/DAY
  5. TIKOSYN [Suspect]
     Dosage: 250 UG, DAILY
     Dates: start: 20020101
  6. ACETYLSALICYLIC ACID [Concomitant]
     Dosage: 81 MG, DAILY
  7. PLAVIX [Concomitant]
     Dosage: 75 MG, DAILY
  8. SPIRIVA [Concomitant]
     Dosage: UNK, DAILY
  9. PERCOCET [Concomitant]
     Dosage: 5/325 MG, 2X/DAY
  10. TOPROL-XL [Concomitant]
     Dosage: 25 MG, DAILY
  11. COUMADIN [Concomitant]
     Dosage: 6 MG, DAILY
  12. DIGOXIN [Concomitant]
     Dosage: 0.125 MG, 2X/DAY
  13. PEPCID [Concomitant]
     Dosage: 20 MG, DAILY
  14. TIKOSYN [Suspect]
     Dosage: 250 UG, DAILY
  15. IMDUR [Concomitant]
     Dosage: 30 MG, 2X/DAY
  16. LASIX [Concomitant]
     Dosage: 80 MG, DAILY

REACTIONS (4)
  - ISCHAEMIC CARDIOMYOPATHY [None]
  - IMPLANTABLE DEFIBRILLATOR REPLACEMENT [None]
  - CORONARY ARTERY DISEASE [None]
  - CHRONIC OBSTRUCTIVE PULMONARY DISEASE [None]
